FAERS Safety Report 11328159 (Version 2)
Quarter: 2017Q4

REPORT INFORMATION
  Report Type: Spontaneous
  Country: US (occurrence: US)
  Receive Date: 20150731
  Receipt Date: 20171127
  Transmission Date: 20180320
  Serious: Yes (Other)
  Sender: FDA-Public Use
  Company Number: US-ASTELLAS-2015US026550

PATIENT
  Age: 78 Year
  Sex: Male

DRUGS (2)
  1. XTANDI [Suspect]
     Active Substance: ENZALUTAMIDE
     Indication: PROSTATE CANCER
     Dosage: UNK UNK, EVERY 6 HOURS
     Route: 065
     Dates: start: 2015
  2. XTANDI [Suspect]
     Active Substance: ENZALUTAMIDE
     Route: 048
     Dates: start: 20171016

REACTIONS (12)
  - Product supply issue [Unknown]
  - Feeling hot [Unknown]
  - Vision blurred [Unknown]
  - Peripheral swelling [Recovering/Resolving]
  - Drug dose omission [Unknown]
  - Headache [Unknown]
  - Weight fluctuation [Unknown]
  - Inappropriate schedule of drug administration [Unknown]
  - Unevaluable event [Unknown]
  - Feeling drunk [Unknown]
  - Treatment noncompliance [Unknown]
  - Hypertension [Unknown]

NARRATIVE: CASE EVENT DATE: 201507
